FAERS Safety Report 6170320-1 (Version None)
Quarter: 2009Q2

REPORT INFORMATION
  Report Type: 
  Country: None (occurrence: None)
  Receive Date: 20090428
  Receipt Date: 20090417
  Transmission Date: 20091009
  Serious: Yes (Other)
  Sender: FDA-Public Use
  Company Number: US-PFIZER INC-2007090289

PATIENT
  Age: 69 Year
  Sex: Male
  Weight: 99 kg

DRUGS (8)
  1. BLINDED *PLACEBO [Suspect]
     Dosage: UNK
     Route: 048
     Dates: start: 20070828, end: 20070907
  2. BLINDED *SORAFENIB [Suspect]
     Dosage: UNK
     Route: 048
     Dates: start: 20070828, end: 20070907
  3. BLINDED SUNITINIB MALATE [Suspect]
     Dosage: UNK
     Route: 048
     Dates: start: 20070828, end: 20070907
  4. AMLODIPINE [Suspect]
  5. ATORVASTATIN [Suspect]
  6. HYZAAR [Suspect]
  7. TOPROL-XL [Suspect]
  8. CARDURA [Concomitant]

REACTIONS (4)
  - EXFOLIATIVE RASH [None]
  - HYPERBILIRUBINAEMIA [None]
  - PHOTOPHOBIA [None]
  - SKIN REACTION [None]
